FAERS Safety Report 24152570 (Version 1)
Quarter: 2024Q3

REPORT INFORMATION
  Report Type: Spontaneous
  Country: US (occurrence: None)
  Receive Date: 20240730
  Receipt Date: 20240730
  Transmission Date: 20241016
  Serious: Yes (Hospitalization)
  Sender: Public
  Company Number: None

PATIENT
  Sex: Male
  Weight: 75.9 kg

DRUGS (1)
  1. CISPLATIN [Suspect]
     Active Substance: CISPLATIN

REACTIONS (10)
  - Syncope [None]
  - Head injury [None]
  - Fall [None]
  - Gait disturbance [None]
  - Asthenia [None]
  - Haemoglobin decreased [None]
  - Haematocrit decreased [None]
  - Blood glucose increased [None]
  - Glucose urine present [None]
  - Creatinine urine increased [None]

NARRATIVE: CASE EVENT DATE: 20240625
